FAERS Safety Report 5567875-4 (Version None)
Quarter: 2007Q4

REPORT INFORMATION
  Report Type: 
  Country: None (occurrence: None)
  Receive Date: 20071218
  Receipt Date: 20071210
  Transmission Date: 20080405
  Serious: Yes (Other)
  Sender: FDA-Public Use
  Company Number: 2007SP024785

PATIENT

DRUGS (1)
  1. CORICIDIN [Suspect]
     Indication: DRUG ABUSE

REACTIONS (1)
  - DRUG ABUSE [None]
